FAERS Safety Report 7685977-3 (Version None)
Quarter: 2011Q3

REPORT INFORMATION
  Report Type: 
  Country: None (occurrence: None)
  Receive Date: 20110816
  Receipt Date: 20110804
  Transmission Date: 20111222
  Serious: Yes (Other)
  Sender: FDA-Public Use
  Company Number: PHFR2011IE01118

PATIENT
  Sex: Male

DRUGS (5)
  1. CLOZAPINE [Suspect]
     Indication: SCHIZOPHRENIA
     Dosage: UNK
     Route: 048
     Dates: start: 20110114
  2. TRIFLUOPERAZINE HCL [Concomitant]
     Dosage: 10 MG/DAY
     Route: 048
     Dates: start: 20101102
  3. CLOZAPINE [Suspect]
     Dosage: DOSE INCREASED BY 50 MG/DAY TO 250 MG/DAY
     Route: 048
     Dates: start: 20110130
  4. LAMOTRIGINE [Concomitant]
     Dosage: 400 MG/DAY
     Route: 048
     Dates: start: 20101102
  5. VALPROATE SODIUM [Concomitant]
     Dosage: 1000 MG/DAY
     Dates: start: 20101102

REACTIONS (8)
  - HYPERPYREXIA [None]
  - BLOOD CREATINE PHOSPHOKINASE INCREASED [None]
  - HEART RATE INCREASED [None]
  - AGITATION [None]
  - CONFUSIONAL STATE [None]
  - NEUROLEPTIC MALIGNANT SYNDROME [None]
  - TACHYCARDIA [None]
  - DISORIENTATION [None]
